FAERS Safety Report 23508744 (Version 1)
Quarter: 2024Q1

REPORT INFORMATION
  Report Type: Spontaneous
  Country: US (occurrence: US)
  Receive Date: 20240209
  Receipt Date: 20240209
  Transmission Date: 20240410
  Serious: No
  Sender: FDA-Public Use
  Company Number: US-ALKERMES INC.-ALK-2024-000212

PATIENT
  Age: 19 Year
  Sex: Male
  Weight: 61.224 kg

DRUGS (3)
  1. VIVITROL [Suspect]
     Active Substance: NALTREXONE
     Indication: Alcoholism
     Dosage: 380 MILLIGRAM, QMO
     Route: 030
     Dates: start: 202312
  2. NICOTINE [Concomitant]
     Active Substance: NICOTINE
     Indication: Tobacco user
     Dosage: UNK
     Route: 065
  3. DEPAKOTE [Concomitant]
     Active Substance: DIVALPROEX SODIUM
     Indication: Product used for unknown indication
     Dosage: UNK
     Route: 065

REACTIONS (4)
  - Heart rate irregular [Unknown]
  - Dizziness [Recovered/Resolved]
  - Dyspnoea [Not Recovered/Not Resolved]
  - Palpitations [Unknown]

NARRATIVE: CASE EVENT DATE: 20240128
